FAERS Safety Report 18391770 (Version 3)
Quarter: 2020Q4

REPORT INFORMATION
  Report Type: Report from Study
  Country: US (occurrence: US)
  Receive Date: 20201016
  Receipt Date: 20201217
  Transmission Date: 20210114
  Serious: Yes (Hospitalization, Other)
  Sender: FDA-Public Use
  Company Number: US-BAYER-2020-193612

PATIENT
  Sex: Female
  Weight: 76.9 kg

DRUGS (11)
  1. KEFLEX [Concomitant]
     Active Substance: CEPHALEXIN
     Indication: CELLULITIS
  2. VANCOMYCIN [Concomitant]
     Active Substance: VANCOMYCIN
     Dosage: UNK
     Dates: end: 20200927
  3. DIFLUCAN [Concomitant]
     Active Substance: FLUCONAZOLE
     Indication: CANDIDA INFECTION
  4. MUPIROCIN. [Concomitant]
     Active Substance: MUPIROCIN
     Indication: SKIN ULCER
     Dosage: UNK
  5. PREDNISONE. [Concomitant]
     Active Substance: PREDNISONE
     Dosage: UNK
     Route: 048
     Dates: start: 20200929
  6. COPANLISIB. [Suspect]
     Active Substance: COPANLISIB
     Indication: ADENOID CYSTIC CARCINOMA OF SALIVARY GLAND
     Dosage: 180 MG IV OVER 60 MINUTES ON DAYS 1, 8 AND 15
     Route: 042
     Dates: start: 20200116, end: 20200910
  7. SOLU-MEDROL [Concomitant]
     Active Substance: METHYLPREDNISOLONE SODIUM SUCCINATE
     Indication: EOSINOPHIL COUNT INCREASED
     Dosage: 40 MG EVERY 12 HOURS
     Route: 042
  8. NYSTATIN. [Concomitant]
     Active Substance: NYSTATIN
     Indication: CANDIDA INFECTION
     Route: 048
  9. CEFTRIAXONE. [Concomitant]
     Active Substance: CEFTRIAXONE
     Dosage: UNK
     Dates: end: 20200928
  10. COPANLISIB. [Suspect]
     Active Substance: COPANLISIB
     Indication: ADENOID CYSTIC CARCINOMA OF SALIVARY GLAND
     Dosage: 90 MG
     Dates: end: 20201127
  11. DOXYCYCLINE. [Concomitant]
     Active Substance: DOXYCYCLINE
     Indication: ERYTHEMA
     Dosage: UNK

REACTIONS (5)
  - Stomatitis [Recovered/Resolved with Sequelae]
  - Hypertension [Recovered/Resolved]
  - Eczema [Recovering/Resolving]
  - Rash maculo-papular [Recovering/Resolving]
  - Dermatitis [Recovering/Resolving]

NARRATIVE: CASE EVENT DATE: 20200814
